FAERS Safety Report 7926865-4 (Version None)
Quarter: 2011Q4

REPORT INFORMATION
  Report Type: 
  Country: None (occurrence: None)
  Receive Date: 20111116
  Receipt Date: 20111004
  Transmission Date: 20120403
  Serious: Yes (Hospitalization)
  Sender: FDA-Public Use
  Company Number: AE11-0084

PATIENT
  Age: 31 Year
  Sex: Male
  Weight: 86.4556 kg

DRUGS (1)
  1. TOLTERODINE TARTRATE [Suspect]
     Indication: DRUG LEVEL
     Dosage: 4 MG/DAY, ORAL
     Route: 048
     Dates: start: 20110924

REACTIONS (1)
  - GASTROENTERITIS VIRAL [None]
